FAERS Safety Report 17575011 (Version 3)
Quarter: 2020Q2

REPORT INFORMATION
  Report Type: Spontaneous
  Country: DE (occurrence: DE)
  Receive Date: 20200324
  Receipt Date: 20200502
  Transmission Date: 20200713
  Serious: Yes (Disabling, Other)
  Sender: FDA-Public Use
  Company Number: DE-AUROBINDO-AUR-APL-2020-013634

PATIENT
  Age: 25 Year
  Sex: Male

DRUGS (5)
  1. ESCITALOPRAM [Suspect]
     Active Substance: ESCITALOPRAM OXALATE
     Indication: MAJOR DEPRESSION
     Dosage: 10 MILLIGRAM, ONCE A DAY
     Route: 065
  2. ESCITALOPRAM [Suspect]
     Active Substance: ESCITALOPRAM OXALATE
     Indication: DEPRESSIVE SYMPTOM
  3. SERTRALINE [Suspect]
     Active Substance: SERTRALINE HYDROCHLORIDE
     Indication: DEPRESSIVE SYMPTOM
     Dosage: 100 MILLIGRAM, ONCE A DAY
     Route: 065
  4. VENLAFAXINE PROLONGED-RELEASE CAPSULE, HARD [Suspect]
     Active Substance: VENLAFAXINE HYDROCHLORIDE
     Indication: DEPRESSION
     Dosage: 37.5 MILLIGRAM, ONCE A DAY
     Route: 065
  5. VENLAFAXINE PROLONGED-RELEASE CAPSULE, HARD [Suspect]
     Active Substance: VENLAFAXINE HYDROCHLORIDE
     Indication: MAJOR DEPRESSION
     Dosage: 150 MILLIGRAM, ONCE A DAY
     Route: 065

REACTIONS (5)
  - Obsessive-compulsive symptom [Recovered/Resolved]
  - Hyperhidrosis [Recovered/Resolved with Sequelae]
  - Restlessness [Recovered/Resolved]
  - Suicidal ideation [Recovered/Resolved]
  - Withdrawal syndrome [Recovered/Resolved]
